FAERS Safety Report 17138479 (Version 1)
Quarter: 2019Q4

REPORT INFORMATION
  Report Type: Spontaneous
  Country: US (occurrence: US)
  Receive Date: 20191211
  Receipt Date: 20191211
  Transmission Date: 20200122
  Serious: No
  Sender: FDA-Public Use
  Company Number: US-UCBSA-2016026162

PATIENT
  Age: 45 Year
  Sex: Female

DRUGS (2)
  1. LEVETIRACETAM. [Suspect]
     Active Substance: LEVETIRACETAM
     Indication: SEIZURE
     Dosage: 500 MG, 2X/DAY (BID)
  2. VALPROIC ACID. [Concomitant]
     Active Substance: VALPROIC ACID
     Indication: SEIZURE
     Dosage: UNKNOWN DOSE

REACTIONS (5)
  - Hyperreflexia [Recovered/Resolved]
  - Muscle twitching [Recovered/Resolved]
  - Limbic encephalitis [Recovered/Resolved]
  - Memory impairment [Recovered/Resolved]
  - Dyskinesia [Recovered/Resolved]
